FAERS Safety Report 7434889-9 (Version None)
Quarter: 2011Q2

REPORT INFORMATION
  Report Type: 
  Country: None (occurrence: None)
  Receive Date: 20110425
  Receipt Date: 20110412
  Transmission Date: 20111010
  Serious: Yes (Hospitalization)
  Sender: FDA-Public Use
  Company Number: FR-ROCHE-759027

PATIENT
  Sex: Male
  Weight: 75 kg

DRUGS (12)
  1. TAHOR [Concomitant]
     Dates: start: 20110118
  2. MYCOPHENOLATE MOFETIL [Suspect]
     Route: 048
     Dates: start: 20101218
  3. CYCLOSPORINE [Suspect]
     Dosage: EVERYDAY
     Route: 048
     Dates: start: 20110120
  4. ROVALCYTE [Concomitant]
     Dates: start: 20101225
  5. AMLODIPINE BESYLATE [Concomitant]
     Dates: start: 20110123
  6. CYCLOSPORINE [Suspect]
     Route: 048
  7. PREDNISONE [Suspect]
     Route: 048
     Dates: start: 20101219
  8. AMLODIPINE BESYLATE [Concomitant]
     Dates: start: 20100114, end: 20110120
  9. BACTRIM [Concomitant]
     Dates: start: 20101219
  10. OROCAL [Concomitant]
     Dates: start: 20101221
  11. CYCLOSPORINE [Suspect]
     Dosage: FREQUENCY: EVERYDAY
     Route: 048
     Dates: start: 20101220
  12. MYCOPHENOLATE MOFETIL [Suspect]
     Route: 048

REACTIONS (4)
  - RENAL LYMPHOCELE [None]
  - POSTRENAL FAILURE [None]
  - LYMPHOCELE [None]
  - BLOOD CREATININE INCREASED [None]
